FAERS Safety Report 9848857 (Version 4)
Quarter: 2014Q2

REPORT INFORMATION
  Report Type: Report from Study
  Country: US (occurrence: US)
  Receive Date: 20140128
  Receipt Date: 20140404
  Transmission Date: 20141212
  Serious: Yes (Hospitalization)
  Sender: FDA-Public Use
  Company Number: US-JNJFOC-20140112415

PATIENT
  Age: 81 Year
  Sex: Male
  Weight: 70.31 kg

DRUGS (4)
  1. REMICADE [Suspect]
     Indication: PSORIASIS
     Route: 042
     Dates: start: 2013
  2. REMICADE [Suspect]
     Indication: PSORIASIS
     Route: 042
     Dates: end: 2013
  3. REMICADE [Suspect]
     Indication: PSORIASIS
     Dosage: STARTED 3 OR 4 YEARS AGO
     Route: 042
  4. REMICADE [Suspect]
     Indication: PSORIASIS
     Route: 042
     Dates: start: 2013, end: 2013

REACTIONS (4)
  - Cerebrovascular accident [Recovered/Resolved]
  - Psoriasis [Not Recovered/Not Resolved]
  - Pruritus [Not Recovered/Not Resolved]
  - Drug effect decreased [Not Recovered/Not Resolved]
